FAERS Safety Report 8474646-8 (Version None)
Quarter: 2012Q2

REPORT INFORMATION
  Report Type: 
  Country: None (occurrence: None)
  Receive Date: 20120622
  Receipt Date: 20120613
  Transmission Date: 20120825
  Serious: Yes (Hospitalization, Other)
  Sender: FDA-Public Use
  Company Number: AUR-APL-2012-02447

PATIENT
  Age: 69 Year
  Sex: Female

DRUGS (8)
  1. LASIX [Suspect]
     Indication: CARDIAC FAILURE
     Dosage: 25/37 MG (1 DOSAGE FORMS, 1 D), ORAL
     Route: 048
     Dates: start: 20120502, end: 20120506
  2. VALSARTAN [Suspect]
     Indication: CARDIAC FAILURE
     Dosage: (40 MG, 1 D), ORAL
     Route: 048
     Dates: start: 20120502
  3. LASIX [Suspect]
     Indication: CARDIAC FAILURE
     Dosage: (50 MG, 1 D), ORAL
     Route: 048
     Dates: start: 20120502
  4. ATORVASTATIN CALCIUM [Concomitant]
  5. RAMIPRIL [Suspect]
     Indication: CARDIAC FAILURE
     Dosage: (5 MG, 1 D), ORAL
     Route: 048
     Dates: start: 20120502, end: 20120506
  6. ASPIRIN [Concomitant]
  7. BISOPROLOL FUMARATE [Concomitant]
  8. PLAVIX [Concomitant]

REACTIONS (7)
  - NASOPHARYNGITIS [None]
  - CARDIAC FAILURE [None]
  - CHEST PAIN [None]
  - AMYLASE INCREASED [None]
  - TREMOR [None]
  - RENAL FAILURE [None]
  - DRY MOUTH [None]
